FAERS Safety Report 9984323 (Version 1)
Quarter: 2014Q1

REPORT INFORMATION
  Report Type: Report from Study
  Country: US (occurrence: US)
  Receive Date: 20140307
  Receipt Date: 20140307
  Transmission Date: 20141002
  Serious: No
  Sender: FDA-Public Use
  Company Number: US-ABBVIE-13P-163-1182785-00

PATIENT
  Age: 79 Year
  Sex: Female
  Weight: 64.92 kg

DRUGS (11)
  1. HUMIRA [Suspect]
     Indication: CROHN^S DISEASE
     Dosage: ONE DOSE
     Dates: start: 20131122, end: 20131122
  2. HUMIRA [Suspect]
     Dosage: ONE DOSE
     Dates: start: 20131206, end: 20131206
  3. HUMIRA [Suspect]
     Dates: start: 20131220
  4. ASACOL [Concomitant]
     Indication: CROHN^S DISEASE
  5. IMURAN [Concomitant]
     Indication: CROHN^S DISEASE
  6. IMURAN [Concomitant]
     Indication: IMMUNODEFICIENCY
  7. FISH OIL [Concomitant]
     Indication: VITAMIN SUPPLEMENTATION
  8. VITAMIN C [Concomitant]
     Indication: VITAMIN SUPPLEMENTATION
  9. VITAMIN D [Concomitant]
     Indication: VITAMIN SUPPLEMENTATION
  10. FOLIC ACID [Concomitant]
     Indication: VITAMIN SUPPLEMENTATION
  11. CELEXA [Concomitant]
     Indication: DEPRESSION

REACTIONS (5)
  - Anxiety [Not Recovered/Not Resolved]
  - Palpitations [Not Recovered/Not Resolved]
  - Diarrhoea [Not Recovered/Not Resolved]
  - Headache [Not Recovered/Not Resolved]
  - Injection site pain [Recovered/Resolved]
